FAERS Safety Report 18071593 (Version 2)
Quarter: 2020Q3

REPORT INFORMATION
  Report Type: Spontaneous
  Country: US (occurrence: US)
  Receive Date: 20200727
  Receipt Date: 20200730
  Transmission Date: 20201103
  Serious: No
  Sender: FDA-Public Use
  Company Number: US-BIOGEN-2020BI00899300

PATIENT
  Sex: Female

DRUGS (1)
  1. TECFIDERA [Suspect]
     Active Substance: DIMETHYL FUMARATE
     Indication: MULTIPLE SCLEROSIS
     Route: 048
     Dates: start: 20141204

REACTIONS (12)
  - Loss of consciousness [Unknown]
  - Seasonal allergy [Unknown]
  - Multiple sclerosis relapse [Unknown]
  - Gastrointestinal disorder [Unknown]
  - Extremity contracture [Unknown]
  - Anaemia [Unknown]
  - Gastrooesophageal reflux disease [Unknown]
  - Chest discomfort [Unknown]
  - Parosmia [Unknown]
  - Ear infection [Unknown]
  - Abdominal pain upper [Unknown]
  - Flushing [Unknown]
